FAERS Safety Report 4606031-0 (Version None)
Quarter: 2005Q1

REPORT INFORMATION
  Report Type: 
  Country: None (occurrence: None)
  Receive Date: 20050311
  Receipt Date: 20050301
  Transmission Date: 20050727
  Serious: Yes (Hospitalization)
  Sender: FDA-Public Use
  Company Number: FR-ROCHE-397179

PATIENT
  Age: 51 Year
  Sex: Female

DRUGS (6)
  1. KYTRIL [Suspect]
     Indication: DRUG USE FOR UNKNOWN INDICATION
     Dosage: DOSAGE REGIMEN REPORTED AS 6 DOSES TOTAL.
     Route: 042
     Dates: start: 20030512, end: 20030821
  2. METHYLPREDNISOLONE [Suspect]
     Indication: DRUG USE FOR UNKNOWN INDICATION
     Dosage: DOSAGE REGIMEN REPORTED AS 6 DOSES TOTAL.
     Route: 042
     Dates: start: 20030512, end: 20030821
  3. CARDIOXANE [Suspect]
     Indication: DRUG USE FOR UNKNOWN INDICATION
     Dosage: DOSAGE REGIMEN REPORTED AS 6 DOSES TOTAL.
     Route: 042
     Dates: start: 20030512, end: 20030821
  4. PRIMPERAN TAB [Suspect]
     Indication: DRUG USE FOR UNKNOWN INDICATION
     Dosage: DOSAGE REGIMEN REPORTED AS 6 DOSES TOTAL.
     Route: 042
     Dates: start: 20030512, end: 20030821
  5. ENDOXAN [Suspect]
     Indication: DRUG USE FOR UNKNOWN INDICATION
     Dosage: DOSAGE REGIMEN REPORTED AS 6 DOSES TOTAL.
     Route: 042
     Dates: start: 20030512, end: 20030821
  6. UNKNOWN STUDY DRUG [Suspect]
     Indication: DRUG USE FOR UNKNOWN INDICATION
     Dosage: DRUG NAME REPORTED AS EPIADRIAMYCINE. DOSAGE REGIMEN REPORTED AS 6 DOSES TOTAL.
     Route: 042
     Dates: start: 20030512, end: 20030821

REACTIONS (3)
  - APLASIA [None]
  - LYMPHANGIOLEIOMYOMATOSIS [None]
  - MYELOID LEUKAEMIA [None]
